FAERS Safety Report 21073199 (Version 3)
Quarter: 2022Q3

REPORT INFORMATION
  Report Type: Spontaneous
  Country: BE (occurrence: BE)
  Receive Date: 20220712
  Receipt Date: 20220829
  Transmission Date: 20221027
  Serious: No
  Sender: FDA-Public Use
  Company Number: BE-JNJFOC-20220655304

PATIENT

DRUGS (3)
  1. FENTANYL [Suspect]
     Active Substance: FENTANYL
     Indication: Neck pain
     Dosage: STRENGTH: 50.00 MCG/HR
     Route: 062
  2. FENTANYL [Suspect]
     Active Substance: FENTANYL
  3. FENTANYL [Suspect]
     Active Substance: FENTANYL

REACTIONS (3)
  - Hyperhidrosis [Unknown]
  - Underdose [Unknown]
  - Product adhesion issue [Unknown]
